FAERS Safety Report 25757179 (Version 1)
Quarter: 2025Q3

REPORT INFORMATION
  Report Type: Spontaneous
  Country: VN (occurrence: VN)
  Receive Date: 20250903
  Receipt Date: 20250903
  Transmission Date: 20251020
  Serious: Yes (Other)
  Sender: BAYER HEALTHCARE PHARMACEUTICALS INC.
  Company Number: VN-BAYER-2025A113524

PATIENT
  Age: 32 Year
  Sex: Female

DRUGS (1)
  1. STIVARGA [Suspect]
     Active Substance: REGORAFENIB MONOHYDRATE
     Indication: Colorectal cancer metastatic
     Dosage: 80 MG, QD
     Dates: start: 202306, end: 202310

REACTIONS (2)
  - Disease progression [Unknown]
  - Product use issue [None]

NARRATIVE: CASE EVENT DATE: 20230601
